FAERS Safety Report 7383704-0 (Version None)
Quarter: 2011Q1

REPORT INFORMATION
  Report Type: 
  Country: None (occurrence: None)
  Receive Date: 20110330
  Receipt Date: 20110324
  Transmission Date: 20110831
  Serious: Yes (Hospitalization)
  Sender: FDA-Public Use
  Company Number: DE-ROCHE-762026

PATIENT
  Sex: Male
  Weight: 98 kg

DRUGS (9)
  1. IBUPROFEN [Concomitant]
     Indication: PAIN
     Route: 048
     Dates: start: 20110202
  2. ALLOPURINOL [Concomitant]
     Route: 048
     Dates: start: 20110202
  3. VOLTAREN [Concomitant]
     Indication: PAIN
     Route: 048
     Dates: start: 20110202
  4. PANTOZOL [Concomitant]
     Indication: ULCER
     Route: 048
     Dates: start: 20110123
  5. MOVIPREP [Concomitant]
     Indication: CONSTIPATION
     Dosage: DRUG NAME REPORTED: MOVICOL BTL. 2 SACHET A DAY
     Route: 048
     Dates: start: 20110123
  6. ACC 600 [Concomitant]
     Indication: THROMBOSIS PROPHYLAXIS
     Route: 048
     Dates: start: 20110202
  7. IBUPROFEN [Concomitant]
     Route: 048
     Dates: start: 20110222, end: 20110223
  8. CAPECITABINE [Suspect]
     Indication: RECTAL CANCER
     Dosage: LAST DOSE PRIOR TO SAE: 21 DEC 2010, TOTAL DOSE 3000 MG
     Route: 048
     Dates: start: 20101115
  9. AMARYL [Concomitant]
     Route: 048
     Dates: start: 20110123

REACTIONS (2)
  - WOUND NECROSIS [None]
  - IMPAIRED HEALING [None]
